FAERS Safety Report 19928620 (Version 7)
Quarter: 2023Q4

REPORT INFORMATION
  Report Type: Other
  Country: AT (occurrence: AT)
  Receive Date: 20211007
  Receipt Date: 20231213
  Transmission Date: 20240110
  Serious: Yes (Other)
  Sender: FDA-Public Use
  Company Number: AT-ROCHE-2925833

PATIENT
  Age: 40 Year
  Sex: Female

DRUGS (66)
  1. XELODA [Suspect]
     Active Substance: CAPECITABINE
     Indication: HER2 positive breast cancer
     Route: 048
     Dates: start: 20210430, end: 20210903
  2. XELODA [Suspect]
     Active Substance: CAPECITABINE
     Dosage: DAY 1 - DAY 14, TWICE DAILY
     Route: 048
     Dates: start: 20210904
  3. HERCEPTIN [Suspect]
     Active Substance: TRASTUZUMAB
     Indication: HER2 positive breast cancer
     Route: 041
     Dates: start: 20161020, end: 20161020
  4. HERCEPTIN [Suspect]
     Active Substance: TRASTUZUMAB
     Route: 041
     Dates: start: 20190906, end: 20210409
  5. HERCEPTIN [Suspect]
     Active Substance: TRASTUZUMAB
     Route: 041
     Dates: start: 20170112, end: 20170112
  6. HERCEPTIN [Suspect]
     Active Substance: TRASTUZUMAB
     Route: 041
     Dates: start: 20170227, end: 20180108
  7. KADCYLA [Suspect]
     Active Substance: ADO-TRASTUZUMAB EMTANSINE
     Indication: HER2 positive breast cancer
     Route: 042
     Dates: start: 20180205, end: 20190816
  8. PERJETA [Suspect]
     Active Substance: PERTUZUMAB
     Indication: HER2 positive breast cancer
     Route: 042
     Dates: start: 20161020, end: 20161020
  9. PERJETA [Suspect]
     Active Substance: PERTUZUMAB
     Route: 042
     Dates: start: 20190906, end: 20210409
  10. PERJETA [Suspect]
     Active Substance: PERTUZUMAB
     Route: 042
     Dates: start: 20170227, end: 20180108
  11. PERJETA [Suspect]
     Active Substance: PERTUZUMAB
     Route: 042
     Dates: start: 20170112, end: 20170112
  12. CYTOXAN [Suspect]
     Active Substance: CYCLOPHOSPHAMIDE
     Indication: HER2 positive breast cancer
     Route: 042
     Dates: start: 20161005, end: 20161005
  13. IRBINITINIB [Suspect]
     Active Substance: IRBINITINIB
     Indication: HER2 positive breast cancer
     Route: 048
     Dates: start: 20210430, end: 20210927
  14. TAXOTERE [Suspect]
     Active Substance: DOCETAXEL
     Indication: HER2 positive breast cancer
     Route: 042
     Dates: start: 20161020, end: 20161020
  15. TAXOTERE [Suspect]
     Active Substance: DOCETAXEL
     Route: 042
     Dates: start: 20161111, end: 20161111
  16. TAXOTERE [Suspect]
     Active Substance: DOCETAXEL
     Route: 042
     Dates: start: 20161201, end: 20161222
  17. TAXOTERE [Suspect]
     Active Substance: DOCETAXEL
     Route: 042
     Dates: start: 20170112, end: 20170202
  18. ELLENCE [Suspect]
     Active Substance: EPIRUBICIN HYDROCHLORIDE
     Indication: HER2 positive breast cancer
     Route: 042
     Dates: start: 20161005, end: 20161005
  19. AMOXICILLIN\CLAVULANATE POTASSIUM [Concomitant]
     Active Substance: AMOXICILLIN\CLAVULANATE POTASSIUM
     Dosage: 1 G TWICE DAILY
     Dates: start: 20161212, end: 20161216
  20. XARELTO [Concomitant]
     Active Substance: RIVAROXABAN
     Indication: Thrombosis prophylaxis
     Dates: start: 20161026, end: 201612
  21. DEXAMETHASONE [Concomitant]
     Active Substance: DEXAMETHASONE
     Indication: Prophylaxis
     Dates: start: 20180117, end: 20180122
  22. DEXAMETHASONE [Concomitant]
     Active Substance: DEXAMETHASONE
     Dosage: 8 MG TWICE DAILY
     Dates: start: 20161202, end: 20161203
  23. HALDOL [Concomitant]
     Active Substance: HALOPERIDOL
     Indication: Prophylaxis of nausea and vomiting
     Dosage: 4 DROPS TWICE DAILY
     Dates: end: 201702
  24. ONDANSETRON HYDROCHLORIDE [Concomitant]
     Active Substance: ONDANSETRON HYDROCHLORIDE
     Indication: Nausea
     Dates: start: 20181105
  25. XGEVA [Concomitant]
     Active Substance: DENOSUMAB
     Indication: Prophylaxis
     Dates: start: 20161201
  26. SERTRALINE HYDROCHLORIDE [Concomitant]
     Active Substance: SERTRALINE HYDROCHLORIDE
     Dates: start: 20171016
  27. ZOFRAN [Concomitant]
     Active Substance: ONDANSETRON HYDROCHLORIDE
     Indication: Prophylaxis of nausea and vomiting
     Dates: start: 20161123, end: 20170204
  28. HALCION [Concomitant]
     Active Substance: TRIAZOLAM
     Indication: Sleep disorder
     Dates: start: 2016, end: 201702
  29. LASIX [Concomitant]
     Active Substance: FUROSEMIDE
     Indication: Prophylaxis
     Dates: start: 20161114, end: 201611
  30. LASIX [Concomitant]
     Active Substance: FUROSEMIDE
     Dates: start: 20161112, end: 20161114
  31. HYDROMORPHONE HYDROCHLORIDE [Concomitant]
     Active Substance: HYDROMORPHONE HYDROCHLORIDE
     Dosage: 4 MG TWICE DAILY
     Dates: start: 20210410
  32. HYDROMORPHONE HYDROCHLORIDE [Concomitant]
     Active Substance: HYDROMORPHONE HYDROCHLORIDE
     Dates: start: 20210309
  33. HYDROMORPHONE HYDROCHLORIDE [Concomitant]
     Active Substance: HYDROMORPHONE HYDROCHLORIDE
     Dates: start: 201706
  34. HYDROMORPHONE HYDROCHLORIDE [Concomitant]
     Active Substance: HYDROMORPHONE HYDROCHLORIDE
     Dates: start: 20190816, end: 20210326
  35. HYDROMORPHONE HYDROCHLORIDE [Concomitant]
     Active Substance: HYDROMORPHONE HYDROCHLORIDE
     Dates: start: 20210326, end: 20210409
  36. BISOPROLOL FUMARATE [Concomitant]
     Active Substance: BISOPROLOL FUMARATE
     Dates: start: 20170227
  37. PASPERTIN [Concomitant]
     Indication: Nausea
     Dosage: 3 AMPULE
     Dates: end: 20161113
  38. LEVETIRACETAM [Concomitant]
     Active Substance: LEVETIRACETAM
     Dosage: 750 MG TWICE DAILY
     Dates: start: 20220201
  39. KCL [Concomitant]
     Active Substance: POTASSIUM CHLORIDE
     Indication: Prophylaxis
     Dosage: 1200 MG TWICE DAILY
     Dates: start: 20161117, end: 201702
  40. ALPRAZOLAM [Concomitant]
     Active Substance: ALPRAZOLAM
     Dates: end: 20161117
  41. LAXAGOL [Concomitant]
     Dosage: ONGOING = CHECKED
     Dates: start: 20201120
  42. PANTOPRAZOLE SODIUM [Concomitant]
     Active Substance: PANTOPRAZOLE SODIUM
     Dates: start: 20161031, end: 20161123
  43. PANTOPRAZOLE SODIUM [Concomitant]
     Active Substance: PANTOPRAZOLE SODIUM
     Dosage: 40 MG TWICE DAILY
     Dates: start: 20161018, end: 20161030
  44. PANTOPRAZOLE SODIUM [Concomitant]
     Active Substance: PANTOPRAZOLE SODIUM
     Dosage: 40 MG TWICE DAILY
     Dates: start: 20161010, end: 20161018
  45. TAZOBACTAM [Concomitant]
     Active Substance: TAZOBACTAM
     Dates: start: 20161208, end: 20161212
  46. BISOPROLOL FUMARATE [Concomitant]
     Active Substance: BISOPROLOL FUMARATE
     Dates: start: 20161117, end: 20170226
  47. LOPERAMIDE HYDROCHLORIDE [Concomitant]
     Active Substance: LOPERAMIDE HYDROCHLORIDE
     Indication: Diarrhoea
     Dates: start: 20171127
  48. PERFALGAN [Concomitant]
     Active Substance: ACETAMINOPHEN
     Dates: start: 20161208, end: 20161212
  49. CLOBAZAM [Concomitant]
     Active Substance: CLOBAZAM
     Dosage: 5 TABLET
     Dates: start: 20220201
  50. GUAR GUM [Concomitant]
     Active Substance: GUAR GUM
     Indication: Prophylaxis
     Dates: start: 20161102, end: 201611
  51. IMODIUM [Concomitant]
     Active Substance: LOPERAMIDE HYDROCHLORIDE
     Dates: start: 20171106, end: 20171127
  52. RAMIPRIL [Concomitant]
     Active Substance: RAMIPRIL
     Dates: start: 20161222, end: 20170226
  53. RAMIPRIL [Concomitant]
     Active Substance: RAMIPRIL
     Dates: start: 20170227
  54. SERTRALINE HYDROCHLORIDE [Concomitant]
     Active Substance: SERTRALINE HYDROCHLORIDE
     Dates: end: 201710
  55. GLANDOMED [Concomitant]
     Dates: start: 20161208, end: 20161222
  56. DEXAMETHASONE [Concomitant]
     Active Substance: DEXAMETHASONE
     Dates: start: 20180817, end: 20180831
  57. DEXIBUPROFEN [Concomitant]
     Active Substance: DEXIBUPROFEN
     Indication: Pain prophylaxis
     Dosage: 400 MG THRICE DAILY
     Dates: start: 20210312
  58. FENTANYL [Concomitant]
     Active Substance: FENTANYL\FENTANYL CITRATE
     Indication: Pain prophylaxis
     Dates: start: 201706
  59. LIPEGFILGRASTIM [Concomitant]
     Active Substance: LIPEGFILGRASTIM
     Indication: Prophylaxis
     Dates: start: 20170113, end: 20170203
  60. METOCLOPRAMIDE [Concomitant]
     Active Substance: METOCLOPRAMIDE
     Indication: Prophylaxis of nausea and vomiting
     Dosage: ONGOING = CHECKED
     Dates: start: 20180205, end: 20190816
  61. CEOLAT [Concomitant]
     Indication: Prophylaxis of nausea and vomiting
     Dates: start: 20161112, end: 201702
  62. MOVICOL [Concomitant]
     Active Substance: POLYETHYLENE GLYCOL 3350\POTASSIUM CHLORIDE\SODIUM BICARBONATE\SODIUM CHLORIDE
     Indication: Constipation prophylaxis
     Dates: end: 201706
  63. ARANESP [Concomitant]
     Active Substance: DARBEPOETIN ALFA
     Indication: Anaemia prophylaxis
     Dates: start: 20161201, end: 201701
  64. SUCRALAN [Concomitant]
     Indication: Prophylaxis
     Dates: start: 20161215
  65. SUCRALAN [Concomitant]
     Dates: start: 201612, end: 20161212
  66. FILGRASTIM [Concomitant]
     Active Substance: FILGRASTIM
     Dates: start: 20161208, end: 20161211

REACTIONS (1)
  - Hemianopia [Recovered/Resolved]

NARRATIVE: CASE EVENT DATE: 20210924
